FAERS Safety Report 9959389 (Version 1)
Quarter: 2014Q1

REPORT INFORMATION
  Report Type: Report from Study
  Country: US (occurrence: US)
  Receive Date: 20140305
  Receipt Date: 20140305
  Transmission Date: 20141002
  Serious: No
  Sender: FDA-Public Use
  Company Number: US-ABBVIE-13P-163-1106765-00

PATIENT
  Age: 48 Year
  Sex: Female

DRUGS (3)
  1. HUMIRA [Suspect]
     Indication: RHEUMATOID ARTHRITIS
  2. OXYBUTYNIN [Concomitant]
     Indication: BLADDER DISORDER
     Dosage: AT BED TIME
  3. AMITRIPTYLINE [Concomitant]
     Indication: INSOMNIA
     Dosage: AT BEDTIME

REACTIONS (4)
  - Urticaria [Not Recovered/Not Resolved]
  - Local swelling [Not Recovered/Not Resolved]
  - Arthralgia [Not Recovered/Not Resolved]
  - Pain in extremity [Not Recovered/Not Resolved]
